FAERS Safety Report 14103935 (Version 2)
Quarter: 2018Q4

REPORT INFORMATION
  Report Type: Spontaneous
  Country: NO (occurrence: NO)
  Receive Date: 20171018
  Receipt Date: 20181217
  Transmission Date: 20190204
  Serious: Yes (Hospitalization, Other)
  Sender: FDA-Public Use
  Company Number: PHHY2017NO150724

PATIENT
  Age: 30 Year
  Sex: Male

DRUGS (3)
  1. AVONEX [Concomitant]
     Active Substance: INTERFERON BETA-1A
     Indication: MULTIPLE SCLEROSIS
     Route: 065
     Dates: start: 200711
  2. GILENYA [Suspect]
     Active Substance: FINGOLIMOD HYDROCHLORIDE
     Indication: MULTIPLE SCLEROSIS
     Dosage: UNK
     Route: 065
     Dates: start: 20151021, end: 20151202
  3. COPAXONE [Concomitant]
     Active Substance: GLATIRAMER ACETATE
     Indication: MULTIPLE SCLEROSIS
     Route: 065
     Dates: start: 200702

REACTIONS (28)
  - Mental impairment [Unknown]
  - Speech disorder [Unknown]
  - Depression [Unknown]
  - Cerebral disorder [Unknown]
  - Restlessness [Unknown]
  - Muscular weakness [Unknown]
  - Facial paralysis [Unknown]
  - Dysarthria [Unknown]
  - Panic disorder [Unknown]
  - Feeling cold [Unknown]
  - Vomiting [Recovering/Resolving]
  - Palpitations [Recovering/Resolving]
  - Paralysis [Unknown]
  - Central nervous system lesion [Unknown]
  - Diplopia [Unknown]
  - Anxiety [Unknown]
  - Malaise [Unknown]
  - Poor quality sleep [Unknown]
  - Asthenia [Unknown]
  - Musculoskeletal stiffness [Unknown]
  - Quality of life decreased [Unknown]
  - Muscle spasticity [Unknown]
  - Pyrexia [Unknown]
  - Peripheral coldness [Unknown]
  - Vision blurred [Unknown]
  - Nausea [Unknown]
  - Hypotension [Unknown]
  - Condition aggravated [Unknown]

NARRATIVE: CASE EVENT DATE: 2015
